FAERS Safety Report 6533333 (Version 3)
Quarter: 2014Q1

REPORT INFORMATION
  Report Type: Report from Study
  Country: US (occurrence: US)
  Receive Date: 20080123
  Receipt Date: 20140103
  Transmission Date: 20141002
  Serious: Yes (Hospitalization)
  Sender: FDA-Public Use
  Company Number: US-PFIZER INC-2007107578

PATIENT
  Age: 70 Year
  Sex: Male
  Weight: 76 kg

DRUGS (11)
  1. SUTENT [Suspect]
     Indication: NON-SMALL CELL LUNG CANCER
     Dosage: 25 MG, DAILY
     Route: 048
     Dates: start: 20071119, end: 20071203
  2. SUTENT [Suspect]
     Dosage: 25 MG, DAILY
     Route: 048
     Dates: start: 20071211, end: 20071223
  3. ERLOTINIB [Suspect]
     Indication: NON-SMALL CELL LUNG CANCER
     Dosage: 150 MG, DAILY
     Route: 048
     Dates: start: 20071119, end: 20071203
  4. ERLOTINIB [Suspect]
     Dosage: 125 MG, DAILY
     Route: 048
     Dates: start: 20071211, end: 20071223
  5. ASA [Concomitant]
     Dosage: 81 MG, DAILY
     Route: 048
  6. MULTIVITAMINS [Concomitant]
     Dosage: 1 DF, DAILY
  7. XALATAN [Concomitant]
     Dosage: UNK
     Route: 047
  8. DOXYCYCLINE [Concomitant]
     Dosage: 100 MG, 2X/DAY
     Route: 048
  9. VITAMIN D [Concomitant]
     Dosage: 400 UNITS DAILY
     Route: 048
  10. METRONIDAZOLE [Concomitant]
     Indication: RASH
     Route: 061
  11. METRONIDAZOLE [Concomitant]
     Indication: FOLLICULITIS

REACTIONS (2)
  - Abdominal pain [Recovered/Resolved]
  - Ileus [Recovered/Resolved]
